FAERS Safety Report 7377331-9 (Version None)
Quarter: 2011Q1

REPORT INFORMATION
  Report Type: 
  Country: None (occurrence: None)
  Receive Date: 20110328
  Receipt Date: 20110317
  Transmission Date: 20110831
  Serious: Yes (Hospitalization, Other)
  Sender: FDA-Public Use
  Company Number: US-JNJFOC-20110308129

PATIENT
  Sex: Female
  Weight: 51.26 kg

DRUGS (8)
  1. DURAGESIC-100 [Suspect]
     Dosage: 100UG/HR 75UG/HR
     Route: 062
  2. HYDROCODONE BITARTRATE [Concomitant]
     Indication: BREAKTHROUGH PAIN
     Dosage: 10/325MG
     Route: 048
  3. DURAGESIC-100 [Suspect]
     Dosage: 100UG/HR+75UG/HR
     Route: 062
  4. FENTANYL-100 [Suspect]
     Indication: PAIN
     Dosage: 100UG/HR AND 75UG/HR
     Route: 062
  5. DURAGESIC-100 [Suspect]
     Indication: PAIN
     Route: 062
  6. DURAGESIC-100 [Suspect]
     Dosage: 100UG/HR+75UG/HR
     Route: 062
  7. FENTANYL-100 [Suspect]
     Indication: PAIN
     Dosage: 100UG/HR 75UG/HR
     Route: 062
  8. FENTANYL-100 [Suspect]
     Indication: PAIN
     Dosage: 100UG/HR AND 75UG/HR
     Route: 062

REACTIONS (11)
  - OSTEOPOROSIS [None]
  - INTERVERTEBRAL DISC DISORDER [None]
  - FLUSHING [None]
  - RASH [None]
  - SURGERY [None]
  - FEELING ABNORMAL [None]
  - DRUG INEFFECTIVE [None]
  - FALL [None]
  - DYSPNOEA [None]
  - LOSS OF CONSCIOUSNESS [None]
  - URINARY RETENTION [None]
